FAERS Safety Report 25867346 (Version 1)
Quarter: 2025Q4

REPORT INFORMATION
  Report Type: Spontaneous
  Country: GB (occurrence: GB)
  Receive Date: 20251001
  Receipt Date: 20251001
  Transmission Date: 20260117
  Serious: Yes (Hospitalization, Disabling, Other)
  Sender: ACCORD
  Company Number: None

PATIENT
  Sex: Female

DRUGS (5)
  1. SERTRALINE [Suspect]
     Active Substance: SERTRALINE HYDROCHLORIDE
     Indication: Product used for unknown indication
  2. SEMAGLUTIDE [Concomitant]
     Active Substance: SEMAGLUTIDE
     Dates: start: 20250220
  3. LANTUS [Concomitant]
     Active Substance: INSULIN GLARGINE
  4. INSULIN ASPART [Concomitant]
     Active Substance: INSULIN ASPART
  5. ALBUTEROL [Concomitant]
     Active Substance: ALBUTEROL

REACTIONS (6)
  - Myopathy [Not Recovered/Not Resolved]
  - Myositis [Not Recovered/Not Resolved]
  - Nausea [Not Recovered/Not Resolved]
  - Vomiting [Recovering/Resolving]
  - Weight decreased [Unknown]
  - Dysphagia [Not Recovered/Not Resolved]

NARRATIVE: CASE EVENT DATE: 20250901
